FAERS Safety Report 5604359-9 (Version None)
Quarter: 2008Q1

REPORT INFORMATION
  Report Type: 
  Country: None (occurrence: None)
  Receive Date: 20080123
  Receipt Date: 20080123
  Transmission Date: 20080703
  Serious: No
  Sender: FDA-Public Use
  Company Number: None

PATIENT
  Age: 43 Year
  Sex: Female
  Weight: 53.0709 kg

DRUGS (1)
  1. EFFEXOR XR [Suspect]
     Indication: MIGRAINE
     Dosage: 37.5 MG 1 PER EVENING PO 75 MG 1 PER EVENING PO
     Route: 048
     Dates: start: 20071203, end: 20071218

REACTIONS (2)
  - PRURITUS [None]
  - RASH MACULO-PAPULAR [None]
